FAERS Safety Report 5121663-1 (Version None)
Quarter: 2006Q4

REPORT INFORMATION
  Report Type: 
  Country: None (occurrence: None)
  Receive Date: 20061006
  Receipt Date: 20060926
  Transmission Date: 20070319
  Serious: Yes (Other)
  Sender: FDA-Public Use
  Company Number: US-JNJFOC-20060906454

PATIENT
  Sex: Female
  Weight: 92.99 kg

DRUGS (11)
  1. TOPAMAX [Suspect]
     Indication: BACK PAIN
     Dosage: AT BEDTIME
     Route: 048
  2. VYTORIN [Concomitant]
     Indication: BLOOD CHOLESTEROL
     Dosage: 10/40
  3. MULTI VIT [Concomitant]
  4. GINKO [Concomitant]
  5. VIT C [Concomitant]
  6. CYMBALTA [Concomitant]
     Route: 048
  7. XANAX [Concomitant]
     Dosage: AS NEEDED
     Route: 048
  8. NEXIUM [Concomitant]
     Route: 048
  9. LISINOPRIL [Concomitant]
     Route: 048
  10. EVISTA [Concomitant]
     Route: 048
  11. COPAXONE [Concomitant]

REACTIONS (4)
  - ANHIDROSIS [None]
  - BODY TEMPERATURE INCREASED [None]
  - MULTIPLE SCLEROSIS [None]
  - THERAPEUTIC RESPONSE UNEXPECTED [None]
